FAERS Safety Report 16755635 (Version 3)
Quarter: 2019Q3

REPORT INFORMATION
  Report Type: Spontaneous
  Country: BR (occurrence: BR)
  Receive Date: 20190829
  Receipt Date: 20190910
  Transmission Date: 20191005
  Serious: Yes (Hospitalization)
  Sender: FDA-Public Use
  Company Number: BR-ELI_LILLY_AND_COMPANY-BR201908012348

PATIENT
  Sex: Female

DRUGS (2)
  1. HUMALOG [Suspect]
     Active Substance: INSULIN LISPRO
     Indication: PRODUCT USED FOR UNKNOWN INDICATION
     Dosage: UNK, UNKNOWN
     Route: 065
  2. BASAGLAR [Suspect]
     Active Substance: INSULIN GLARGINE
     Indication: PRODUCT USED FOR UNKNOWN INDICATION
     Dosage: UNK, UNKNOWN
     Route: 065

REACTIONS (12)
  - Hyperglycaemia [Unknown]
  - Product dose omission [Unknown]
  - Fall [Unknown]
  - Vomiting [Unknown]
  - Femur fracture [Unknown]
  - Product storage error [Unknown]
  - Head injury [Unknown]
  - Diarrhoea [Unknown]
  - Fall [Unknown]
  - Confusional state [Unknown]
  - Dehydration [Unknown]
  - Ketoacidosis [Unknown]

NARRATIVE: CASE EVENT DATE: 201908
